FAERS Safety Report 19627396 (Version 1)
Quarter: 2021Q3

REPORT INFORMATION
  Report Type: Spontaneous
  Country: BR (occurrence: BR)
  Receive Date: 20210728
  Receipt Date: 20210728
  Transmission Date: 20211014
  Serious: Yes (Other)
  Sender: FDA-Public Use
  Company Number: BR-GLAXOSMITHKLINE-BR2021GSK157599

PATIENT
  Age: 54 Year
  Sex: Female

DRUGS (2)
  1. ACICLOVIR [Suspect]
     Active Substance: ACYCLOVIR
     Indication: HERPES ZOSTER
     Dosage: 200 MG, Z (EVERY 6 HOURS)
     Dates: start: 2016, end: 2016
  2. TAMOXIFEN [Suspect]
     Active Substance: TAMOXIFEN
     Indication: HORMONE THERAPY
     Dosage: 20 MG, 1D
     Dates: start: 2015

REACTIONS (11)
  - Erythema [Recovered/Resolved]
  - Skin induration [Recovered/Resolved]
  - Tissue infiltration [Recovered/Resolved]
  - Dermatitis [Recovered/Resolved]
  - Self-medication [Unknown]
  - Radiation skin injury [Recovered/Resolved]
  - Breast pain [Recovered/Resolved]
  - Incision site discharge [Recovered/Resolved]
  - Skin lesion [Recovered/Resolved]
  - Pyrexia [Recovered/Resolved]
  - Condition aggravated [Recovered/Resolved]

NARRATIVE: CASE EVENT DATE: 2016
